FAERS Safety Report 7439496-X (Version None)
Quarter: 2011Q2

REPORT INFORMATION
  Report Type: 
  Country: None (occurrence: None)
  Receive Date: 20110427
  Receipt Date: 20110421
  Transmission Date: 20111010
  Serious: Yes (Death)
  Sender: FDA-Public Use
  Company Number: AU-ASTRAZENECA-2011SE23463

PATIENT
  Age: 35 Year
  Sex: Male

DRUGS (4)
  1. SANDOMIGRAN [Suspect]
     Route: 065
  2. METHADONE [Suspect]
     Route: 065
  3. SEROQUEL [Suspect]
     Route: 048
  4. EFFEXOR XR [Suspect]
     Route: 065

REACTIONS (4)
  - HEADACHE [None]
  - CONVULSION [None]
  - CARDIO-RESPIRATORY ARREST [None]
  - CHEYNE-STOKES RESPIRATION [None]
